FAERS Safety Report 22091470 (Version 4)
Quarter: 2023Q4

REPORT INFORMATION
  Report Type: Spontaneous
  Country: CA (occurrence: CA)
  Receive Date: 20230314
  Receipt Date: 20231019
  Transmission Date: 20240109
  Serious: Yes (Other)
  Sender: FDA-Public Use
  Company Number: CA-002147023-NVSC2023CA052386

PATIENT
  Age: 8 Year
  Sex: Male

DRUGS (10)
  1. ERELZI [Suspect]
     Active Substance: ETANERCEPT-SZZS
     Indication: X-linked lymphoproliferative syndrome
     Dosage: UNK
     Route: 065
  2. INFLIXIMAB [Suspect]
     Active Substance: INFLIXIMAB
     Indication: X-linked lymphoproliferative syndrome
     Dosage: UNK
     Route: 065
  3. RITUXIMAB [Suspect]
     Active Substance: RITUXIMAB
     Indication: X-linked lymphoproliferative syndrome
     Dosage: UNK
     Route: 065
  4. CANAKINUMAB [Suspect]
     Active Substance: CANAKINUMAB
     Indication: X-linked lymphoproliferative syndrome
     Dosage: UNK
     Route: 065
  5. COLCHICINE [Suspect]
     Active Substance: COLCHICINE
     Indication: X-linked lymphoproliferative syndrome
     Dosage: UNK
     Route: 065
  6. ENTYVIO [Suspect]
     Active Substance: VEDOLIZUMAB
     Indication: X-linked lymphoproliferative syndrome
     Dosage: UNK (FOR I.V INFUSION)
     Route: 042
  7. ENTYVIO [Suspect]
     Active Substance: VEDOLIZUMAB
     Dosage: UNK (FOR I.V INFUSION)
     Route: 041
  8. ENTYVIO [Suspect]
     Active Substance: VEDOLIZUMAB
     Dosage: UNK, INTRAVENOUS (NOT OTHERWISE SPECIFIED)
     Route: 065
  9. MESALAMINE [Suspect]
     Active Substance: MESALAMINE
     Indication: X-linked lymphoproliferative syndrome
     Dosage: UNK
     Route: 065
  10. TOCILIZUMAB [Suspect]
     Active Substance: TOCILIZUMAB
     Indication: X-linked lymphoproliferative syndrome
     Dosage: UNK
     Route: 065

REACTIONS (11)
  - Growth retardation [Unknown]
  - Muscle abscess [Unknown]
  - Staphylococcal infection [Unknown]
  - Osteoporosis [Unknown]
  - Pneumonia streptococcal [Unknown]
  - Secondary adrenocortical insufficiency [Unknown]
  - Cellulitis [Unknown]
  - Condition aggravated [Unknown]
  - X-linked lymphoproliferative syndrome [Unknown]
  - Product use in unapproved indication [Unknown]
  - Drug ineffective [Unknown]
